FAERS Safety Report 19840743 (Version 1)
Quarter: 2021Q3

REPORT INFORMATION
  Report Type: Spontaneous
  Country: US (occurrence: US)
  Receive Date: 20210916
  Receipt Date: 20210916
  Transmission Date: 20211014
  Serious: Yes (Hospitalization, Other)
  Sender: FDA-Public Use
  Company Number: US-SUN PHARMACEUTICAL INDUSTRIES LTD-2021R1-311488

PATIENT
  Age: 65 Year
  Sex: Male

DRUGS (6)
  1. BENAZEPRIL [Suspect]
     Active Substance: BENAZEPRIL HYDROCHLORIDE
     Indication: HYPERTENSION
     Dosage: UNK
     Route: 065
  2. CARVEDILOL. [Suspect]
     Active Substance: CARVEDILOL
     Indication: HYPERTENSION
     Dosage: UNK/3 BOTTLES OF CARVEDILOL AT 2 DIFFERENT DOSES
     Route: 065
  3. AMLODIPINE [Suspect]
     Active Substance: AMLODIPINE BESYLATE
     Indication: HYPERTENSION
     Dosage: UNK
     Route: 065
  4. CARVEDILOL. [Suspect]
     Active Substance: CARVEDILOL
     Indication: HYPERTENSION
     Dosage: UNK/3 BOTTLES OF CARVEDILOL AT 2 DIFFERENT DOSES
     Route: 065
  5. ISOSORBIDE DINITRATE AND HYDRALAZINE [Suspect]
     Active Substance: HYDRALAZINE HYDROCHLORIDE\ISOSORBIDE DINITRATE
     Indication: HYPERTENSION
     Dosage: UNK
     Route: 065
  6. HYDROCHLOROTHIAZIDE. [Suspect]
     Active Substance: HYDROCHLOROTHIAZIDE
     Indication: HYPERTENSION
     Dosage: 4 BOTTLES OF HYDROCHLOROTHIAZIDE AT DIFFERENT DOSES
     Route: 065

REACTIONS (5)
  - Mental disorder [Unknown]
  - Hypotension [Unknown]
  - Multiple drug therapy [Unknown]
  - Loss of consciousness [Unknown]
  - Cerebrovascular accident [Unknown]
